FAERS Safety Report 9723643 (Version 3)
Quarter: 2014Q1

REPORT INFORMATION
  Report Type: Report from Study
  Country: DE (occurrence: DE)
  Receive Date: 20131202
  Receipt Date: 20140228
  Transmission Date: 20141002
  Serious: Yes (Other)
  Sender: FDA-Public Use
  Company Number: DE-INCYTE CORPORATION-2013IN002821

PATIENT
  Sex: Female
  Weight: 66 kg

DRUGS (9)
  1. INCB018424 [Suspect]
     Indication: MYELOFIBROSIS
     Dosage: 20 MG, DF PER DAY
     Route: 048
     Dates: start: 20130510
  2. INCB018424 [Suspect]
     Dosage: 5 MG 4 DF PER DAY
     Route: 048
     Dates: start: 20130703, end: 20130717
  3. INCB018424 [Suspect]
     Dosage: 5 MG 4 DF PER DAY
     Route: 048
     Dates: start: 20130802, end: 20131107
  4. BLOOD TRANSFUSION, AUXILIARY PRODUCTS [Concomitant]
  5. BISOPROLOL [Concomitant]
     Dosage: UNK
     Dates: start: 20100114
  6. TORASEMIDE [Concomitant]
     Dosage: UNK
     Dates: start: 20130409
  7. OMEPRAZOLE [Concomitant]
     Dosage: UNK
     Dates: start: 20080424, end: 20130114
  8. DETRUSITOL [Concomitant]
     Dosage: UNK
     Dates: start: 20090112
  9. DEKRISTOL [Concomitant]
     Dosage: UNK
     Dates: start: 20120514

REACTIONS (1)
  - Hypertension [Recovered/Resolved]
